FAERS Safety Report 10504582 (Version 3)
Quarter: 2015Q4

REPORT INFORMATION
  Report Type: Spontaneous
  Country: US (occurrence: US)
  Receive Date: 20141008
  Receipt Date: 20151006
  Transmission Date: 20160304
  Serious: No
  Sender: FDA-Public Use
  Company Number: US-AMGEN INC.-USASP2013069221

PATIENT
  Age: 65 Year
  Sex: Male
  Weight: 92.97 kg

DRUGS (1)
  1. XGEVA [Suspect]
     Active Substance: DENOSUMAB
     Indication: PROPHYLAXIS
     Dosage: 120 MG, QMO
     Route: 058
     Dates: start: 20130130, end: 20130904

REACTIONS (5)
  - Toothache [Recovered/Resolved]
  - Dental discomfort [Unknown]
  - Device failure [Unknown]
  - Tooth disorder [Unknown]
  - Mastication disorder [Unknown]
